FAERS Safety Report 18803952 (Version 1)
Quarter: 2021Q1

REPORT INFORMATION
  Report Type: Spontaneous
  Country: US (occurrence: US)
  Receive Date: 20210128
  Receipt Date: 20210128
  Transmission Date: 20210419
  Serious: No
  Sender: FDA-Public Use
  Company Number: US-ASTRAZENECA-2021A012778

PATIENT
  Age: 23150 Day
  Sex: Female

DRUGS (5)
  1. OMEPRAZOLE. [Suspect]
     Active Substance: OMEPRAZOLE
     Route: 048
  2. ALBUTEROL RESCUE INHALER [Concomitant]
     Route: 055
  3. LEXAPRO [Concomitant]
     Active Substance: ESCITALOPRAM OXALATE
  4. ALBUTEROL NEBULIZER [Concomitant]
     Active Substance: ALBUTEROL
  5. BEVESPI AEROSPHERE [Suspect]
     Active Substance: FORMOTEROL FUMARATE\GLYCOPYRROLATE
     Indication: CHRONIC OBSTRUCTIVE PULMONARY DISEASE
     Dosage: 9?4.8 MCG, INHALATION, 2 PUFFS, TWICE DAILY
     Route: 055
     Dates: start: 20191220

REACTIONS (2)
  - Nervousness [Unknown]
  - Product use issue [Unknown]

NARRATIVE: CASE EVENT DATE: 20210121
